FAERS Safety Report 12895880 (Version 1)
Quarter: 2016Q4

REPORT INFORMATION
  Report Type: Spontaneous
  Country: US (occurrence: US)
  Receive Date: 20161031
  Receipt Date: 20161031
  Transmission Date: 20170207
  Serious: No
  Sender: FDA-Public Use
  Company Number: US-JNJFOC-20161009323

PATIENT
  Age: 74 Year
  Sex: Female
  Weight: 145.15 kg

DRUGS (3)
  1. TANZEUM [Concomitant]
     Active Substance: ALBIGLUTIDE
     Route: 065
  2. INVOKANA [Suspect]
     Active Substance: CANAGLIFLOZIN
     Indication: TYPE 2 DIABETES MELLITUS
     Route: 065
     Dates: start: 2016, end: 20161011
  3. INSULIN [Concomitant]
     Active Substance: INSULIN NOS
     Route: 065

REACTIONS (2)
  - Eructation [Unknown]
  - Diarrhoea [Unknown]
